FAERS Safety Report 9729563 (Version 3)
Quarter: 2014Q1

REPORT INFORMATION
  Report Type: Spontaneous
  Country: US (occurrence: US)
  Receive Date: 20131204
  Receipt Date: 20140127
  Transmission Date: 20141002
  Serious: Yes (Death, Hospitalization)
  Sender: FDA-Public Use
  Company Number: US-INCYTE CORPORATION-2013IN002831

PATIENT
  Age: 70 Year
  Sex: Male
  Weight: 73.47 kg

DRUGS (10)
  1. JAKAFI [Suspect]
     Indication: MYELOFIBROSIS
     Dosage: 20 MG, BID
     Route: 048
     Dates: start: 20131011, end: 20131111
  2. ASPIRIN [Concomitant]
     Dosage: 81 MG, QD
  3. LASIX                              /00032601/ [Concomitant]
     Dosage: 20 MG, QD
  4. POTASSIUM [Concomitant]
     Dosage: 10 MEQ, QD
  5. MULTIVITAMIN                       /00097801/ [Concomitant]
     Dosage: QD
  6. VITAMIN B12                        /00056201/ [Concomitant]
     Dosage: QD
  7. ATIVAN [Concomitant]
     Dosage: 1 MG, QID, PRN
  8. OXYGEN [Concomitant]
     Dosage: 2L AT NIGHT
     Route: 045
  9. LEVOXYL [Concomitant]
     Dosage: 50 MCG, QD
     Route: 048
  10. COLLAGEN [Concomitant]
     Dosage: 1000 MG, QD

REACTIONS (4)
  - Death [Fatal]
  - Neurodegenerative disorder [Unknown]
  - Hypothyroidism [Unknown]
  - Hashimoto^s encephalopathy [Unknown]
